FAERS Safety Report 7104853-8 (Version None)
Quarter: 2010Q4

REPORT INFORMATION
  Report Type: 
  Country: None (occurrence: None)
  Receive Date: 20101110
  Receipt Date: 20101103
  Transmission Date: 20110411
  Serious: Yes (Death)
  Sender: FDA-Public Use
  Company Number: UTC-001930

PATIENT
  Age: 47 Year
  Sex: Female
  Weight: 91.6 kg

DRUGS (2)
  1. REMODULIN [Suspect]
     Indication: PULMONARY HYPERTENSION
     Dosage: 47.52 UG/KG (0.033 UG/KG, 1 IN 1 MIN), INTRAVENOUS
     Route: 042
     Dates: start: 20100323
  2. DIURETICS [Concomitant]

REACTIONS (1)
  - DEATH [None]
